FAERS Safety Report 8495883-2 (Version None)
Quarter: 2012Q3

REPORT INFORMATION
  Report Type: 
  Country: None (occurrence: None)
  Receive Date: 20120709
  Receipt Date: 20120703
  Transmission Date: 20120928
  Serious: No
  Sender: FDA-Public Use
  Company Number: US-PFIZER INC-2012159980

PATIENT
  Sex: Male
  Weight: 16.327 kg

DRUGS (1)
  1. IBUPROFEN (ADVIL) [Suspect]
     Dosage: THREE TABLETS OF 200 MG , UNK
     Route: 048
     Dates: start: 20120703

REACTIONS (2)
  - VOMITING [None]
  - ACCIDENTAL DRUG INTAKE BY CHILD [None]
